FAERS Safety Report 22161559 (Version 1)
Quarter: 2023Q1

REPORT INFORMATION
  Report Type: Report from Study
  Country: CN (occurrence: None)
  Receive Date: 20230331
  Receipt Date: 20230331
  Transmission Date: 20230418
  Serious: Yes (Other)
  Sender: FDA-Public Use
  Company Number: CN-ROCHE-3318599

PATIENT
  Age: 56 Year
  Sex: Female
  Weight: 58 kg

DRUGS (106)
  1. TRASTUZUMAB [Suspect]
     Active Substance: TRASTUZUMAB
     Indication: Neoplasm
     Dosage: MOST RECENT DOSE OF TRASTUZUMAB 348 MG WAS ADMINISTERED ON 17/MAR/2023, AT 11.30?FIRST DOSE 150 MG/V
     Route: 041
  2. PERTUZUMAB [Suspect]
     Active Substance: PERTUZUMAB
     Indication: Neoplasm
     Dosage: MOST RECENT DOSE OF PERTUZUMAB WAS ADMINISTERED ON 17/MAR/2023 AT 10: 27, 420 MG
     Route: 042
  3. PANTOPRAZOLE SODIUM [Concomitant]
     Active Substance: PANTOPRAZOLE SODIUM
     Route: 042
     Dates: start: 20210129, end: 20210129
  4. OMEPRAZOLE SODIUM [Concomitant]
     Active Substance: OMEPRAZOLE SODIUM
     Route: 042
     Dates: start: 20210129
  5. OMEPRAZOLE SODIUM [Concomitant]
     Active Substance: OMEPRAZOLE SODIUM
     Route: 042
     Dates: start: 20210219, end: 20210219
  6. OMEPRAZOLE SODIUM [Concomitant]
     Active Substance: OMEPRAZOLE SODIUM
     Route: 042
     Dates: start: 20210312, end: 20210312
  7. OMEPRAZOLE SODIUM [Concomitant]
     Active Substance: OMEPRAZOLE SODIUM
     Route: 042
     Dates: start: 20210402, end: 20210402
  8. OMEPRAZOLE SODIUM [Concomitant]
     Active Substance: OMEPRAZOLE SODIUM
     Route: 042
     Dates: start: 20210423, end: 20210423
  9. OMEPRAZOLE SODIUM [Concomitant]
     Active Substance: OMEPRAZOLE SODIUM
     Route: 042
     Dates: start: 20210514, end: 20210514
  10. OMEPRAZOLE SODIUM [Concomitant]
     Active Substance: OMEPRAZOLE SODIUM
     Route: 042
     Dates: start: 20210604, end: 20210604
  11. OMEPRAZOLE SODIUM [Concomitant]
     Active Substance: OMEPRAZOLE SODIUM
     Route: 042
     Dates: start: 20210625, end: 20210625
  12. OMEPRAZOLE SODIUM [Concomitant]
     Active Substance: OMEPRAZOLE SODIUM
     Route: 042
     Dates: start: 20210716, end: 20210716
  13. OMEPRAZOLE SODIUM [Concomitant]
     Active Substance: OMEPRAZOLE SODIUM
     Route: 042
     Dates: start: 20210827, end: 20210827
  14. OMEPRAZOLE SODIUM [Concomitant]
     Active Substance: OMEPRAZOLE SODIUM
     Route: 042
     Dates: start: 20210917, end: 20210917
  15. OMEPRAZOLE SODIUM [Concomitant]
     Active Substance: OMEPRAZOLE SODIUM
     Route: 042
     Dates: start: 20211029, end: 20211029
  16. OMEPRAZOLE SODIUM [Concomitant]
     Active Substance: OMEPRAZOLE SODIUM
     Route: 042
     Dates: start: 20211119, end: 20211119
  17. OMEPRAZOLE SODIUM [Concomitant]
     Active Substance: OMEPRAZOLE SODIUM
     Route: 042
     Dates: start: 20211210, end: 20211210
  18. OMEPRAZOLE SODIUM [Concomitant]
     Active Substance: OMEPRAZOLE SODIUM
     Route: 042
     Dates: start: 20211231, end: 20211231
  19. OMEPRAZOLE SODIUM [Concomitant]
     Active Substance: OMEPRAZOLE SODIUM
     Route: 042
     Dates: start: 20220121, end: 20220121
  20. OMEPRAZOLE SODIUM [Concomitant]
     Active Substance: OMEPRAZOLE SODIUM
     Route: 042
     Dates: start: 20220211, end: 20220211
  21. OMEPRAZOLE SODIUM [Concomitant]
     Active Substance: OMEPRAZOLE SODIUM
     Route: 042
     Dates: start: 20220304, end: 20220304
  22. OMEPRAZOLE SODIUM [Concomitant]
     Active Substance: OMEPRAZOLE SODIUM
     Route: 042
     Dates: start: 20220630, end: 20220630
  23. OMEPRAZOLE SODIUM [Concomitant]
     Active Substance: OMEPRAZOLE SODIUM
     Route: 042
     Dates: start: 20220609, end: 20220609
  24. LEVOCARNITINE [Concomitant]
     Active Substance: LEVOCARNITINE
     Route: 042
     Dates: start: 20210129, end: 20210129
  25. LEVOCARNITINE [Concomitant]
     Active Substance: LEVOCARNITINE
     Route: 042
     Dates: start: 20210219, end: 20210219
  26. LEVOCARNITINE [Concomitant]
     Active Substance: LEVOCARNITINE
     Route: 042
     Dates: start: 20210312, end: 20210312
  27. LEVOCARNITINE [Concomitant]
     Active Substance: LEVOCARNITINE
     Route: 042
     Dates: start: 20210402, end: 20210402
  28. LEVOCARNITINE [Concomitant]
     Active Substance: LEVOCARNITINE
     Route: 042
     Dates: start: 20210423, end: 20210423
  29. LEVOCARNITINE [Concomitant]
     Active Substance: LEVOCARNITINE
     Route: 042
     Dates: start: 20210514, end: 20210514
  30. LEVOCARNITINE [Concomitant]
     Active Substance: LEVOCARNITINE
     Route: 042
     Dates: start: 20210604, end: 20210604
  31. LEVOCARNITINE [Concomitant]
     Active Substance: LEVOCARNITINE
     Route: 042
     Dates: start: 20210625, end: 20210625
  32. LEVOCARNITINE [Concomitant]
     Active Substance: LEVOCARNITINE
     Route: 042
     Dates: start: 20210716, end: 20210716
  33. LEVOCARNITINE [Concomitant]
     Active Substance: LEVOCARNITINE
     Route: 042
     Dates: start: 20210806, end: 20210806
  34. LEVOCARNITINE [Concomitant]
     Active Substance: LEVOCARNITINE
     Route: 042
     Dates: start: 20210827, end: 20210827
  35. LEVOCARNITINE [Concomitant]
     Active Substance: LEVOCARNITINE
     Route: 042
     Dates: start: 20210917, end: 20210917
  36. LEVOCARNITINE [Concomitant]
     Active Substance: LEVOCARNITINE
     Route: 042
     Dates: start: 20211029, end: 20211029
  37. LEVOCARNITINE [Concomitant]
     Active Substance: LEVOCARNITINE
     Route: 042
     Dates: start: 20211119, end: 20211119
  38. LEVOCARNITINE [Concomitant]
     Active Substance: LEVOCARNITINE
     Route: 042
     Dates: start: 20211210, end: 20211210
  39. LEVOCARNITINE [Concomitant]
     Active Substance: LEVOCARNITINE
     Route: 042
     Dates: start: 20211231, end: 20211231
  40. LEVOCARNITINE [Concomitant]
     Active Substance: LEVOCARNITINE
     Route: 042
     Dates: start: 20220121, end: 20220121
  41. LEVOCARNITINE [Concomitant]
     Active Substance: LEVOCARNITINE
     Route: 042
     Dates: start: 20220211, end: 20220211
  42. LEVOCARNITINE [Concomitant]
     Active Substance: LEVOCARNITINE
     Route: 042
     Dates: start: 20220304, end: 20220304
  43. LEVOCARNITINE [Concomitant]
     Active Substance: LEVOCARNITINE
     Route: 042
     Dates: start: 20220630, end: 20220630
  44. LEVOCARNITINE [Concomitant]
     Active Substance: LEVOCARNITINE
     Route: 042
     Dates: start: 20220720, end: 20220720
  45. LEVOCARNITINE [Concomitant]
     Active Substance: LEVOCARNITINE
     Route: 042
     Dates: start: 20220810, end: 20220810
  46. LEVOCARNITINE [Concomitant]
     Active Substance: LEVOCARNITINE
     Route: 042
     Dates: start: 20211009, end: 20211009
  47. LEVOCARNITINE [Concomitant]
     Active Substance: LEVOCARNITINE
     Route: 042
     Dates: start: 20220609, end: 20220609
  48. LEVOCARNITINE [Concomitant]
     Active Substance: LEVOCARNITINE
     Route: 042
     Dates: start: 20220831, end: 20220831
  49. LEVOCARNITINE [Concomitant]
     Active Substance: LEVOCARNITINE
     Route: 042
     Dates: start: 20220921, end: 20220921
  50. LEVOCARNITINE [Concomitant]
     Active Substance: LEVOCARNITINE
     Route: 042
     Dates: start: 20221012, end: 20221012
  51. LEVOCARNITINE [Concomitant]
     Active Substance: LEVOCARNITINE
     Route: 042
     Dates: start: 20221102, end: 20221102
  52. LEVOCARNITINE [Concomitant]
     Active Substance: LEVOCARNITINE
     Route: 042
     Dates: start: 20221123, end: 20221123
  53. LEVOCARNITINE [Concomitant]
     Active Substance: LEVOCARNITINE
     Route: 042
     Dates: start: 20230224, end: 20230224
  54. LEVOCARNITINE [Concomitant]
     Active Substance: LEVOCARNITINE
     Route: 042
     Dates: start: 20230203, end: 20230203
  55. LEVOCARNITINE [Concomitant]
     Active Substance: LEVOCARNITINE
     Route: 042
     Dates: start: 20230112, end: 20230112
  56. DIISOPROPYLAMMONIUM DICHLOROACETATE [Concomitant]
     Active Substance: DIISOPROPYLAMMONIUM DICHLOROACETATE
     Route: 042
     Dates: start: 20210219, end: 20210219
  57. DIISOPROPYLAMMONIUM DICHLOROACETATE [Concomitant]
     Active Substance: DIISOPROPYLAMMONIUM DICHLOROACETATE
     Route: 042
     Dates: start: 20210312, end: 20210312
  58. DIISOPROPYLAMMONIUM DICHLOROACETATE [Concomitant]
     Active Substance: DIISOPROPYLAMMONIUM DICHLOROACETATE
     Route: 042
     Dates: start: 20210402, end: 20210402
  59. DIISOPROPYLAMMONIUM DICHLOROACETATE [Concomitant]
     Active Substance: DIISOPROPYLAMMONIUM DICHLOROACETATE
     Route: 042
     Dates: start: 20210423, end: 20210423
  60. REDUCED GLUTATHIONE [Concomitant]
     Route: 042
     Dates: start: 20210514, end: 20210514
  61. REDUCED GLUTATHIONE [Concomitant]
     Route: 042
     Dates: start: 20210604, end: 20210604
  62. REDUCED GLUTATHIONE [Concomitant]
     Route: 042
     Dates: start: 20210625, end: 20210625
  63. REDUCED GLUTATHIONE [Concomitant]
     Route: 042
     Dates: start: 20210716, end: 20210716
  64. REDUCED GLUTATHIONE [Concomitant]
     Route: 042
     Dates: start: 20210806, end: 20210806
  65. REDUCED GLUTATHIONE [Concomitant]
     Route: 042
     Dates: start: 20210827, end: 20210827
  66. REDUCED GLUTATHIONE [Concomitant]
     Route: 042
     Dates: start: 20210917, end: 20210917
  67. REDUCED GLUTATHIONE [Concomitant]
     Route: 042
     Dates: start: 20211029, end: 20211029
  68. REDUCED GLUTATHIONE [Concomitant]
     Route: 042
     Dates: start: 20211119, end: 20211119
  69. REDUCED GLUTATHIONE [Concomitant]
     Route: 042
     Dates: start: 20211210, end: 20211210
  70. REDUCED GLUTATHIONE [Concomitant]
     Route: 042
     Dates: start: 20211231, end: 20211231
  71. REDUCED GLUTATHIONE [Concomitant]
     Route: 042
     Dates: start: 20220121, end: 20220121
  72. REDUCED GLUTATHIONE [Concomitant]
     Route: 042
     Dates: start: 20220211, end: 20220211
  73. REDUCED GLUTATHIONE [Concomitant]
     Route: 042
     Dates: start: 20220304, end: 20220304
  74. REDUCED GLUTATHIONE [Concomitant]
     Route: 042
     Dates: start: 20220630, end: 20220630
  75. REDUCED GLUTATHIONE [Concomitant]
     Route: 042
     Dates: start: 20220720, end: 20220720
  76. REDUCED GLUTATHIONE [Concomitant]
     Route: 042
     Dates: start: 20220810, end: 20220810
  77. REDUCED GLUTATHIONE [Concomitant]
     Route: 042
     Dates: start: 20211009, end: 20211009
  78. REDUCED GLUTATHIONE [Concomitant]
     Route: 042
     Dates: start: 20220609, end: 20220609
  79. REDUCED GLUTATHIONE [Concomitant]
     Route: 042
     Dates: start: 20220831, end: 20220831
  80. REDUCED GLUTATHIONE [Concomitant]
     Route: 042
     Dates: start: 20220921, end: 20220921
  81. REDUCED GLUTATHIONE [Concomitant]
     Route: 042
     Dates: start: 20221012, end: 20221012
  82. DIPHENHYDRAMINE HYDROCHLORIDE [Concomitant]
     Active Substance: DIPHENHYDRAMINE HYDROCHLORIDE
     Route: 048
     Dates: start: 20210625, end: 20210625
  83. DIPHENHYDRAMINE HYDROCHLORIDE [Concomitant]
     Active Substance: DIPHENHYDRAMINE HYDROCHLORIDE
     Route: 048
     Dates: start: 20210716, end: 20210716
  84. DIPHENHYDRAMINE HYDROCHLORIDE [Concomitant]
     Active Substance: DIPHENHYDRAMINE HYDROCHLORIDE
     Route: 048
     Dates: start: 20210806, end: 20210806
  85. DIPHENHYDRAMINE HYDROCHLORIDE [Concomitant]
     Active Substance: DIPHENHYDRAMINE HYDROCHLORIDE
     Route: 048
     Dates: start: 20210827, end: 20210827
  86. DIPHENHYDRAMINE HYDROCHLORIDE [Concomitant]
     Active Substance: DIPHENHYDRAMINE HYDROCHLORIDE
     Route: 048
     Dates: start: 20210917, end: 20210917
  87. DIPHENHYDRAMINE HYDROCHLORIDE [Concomitant]
     Active Substance: DIPHENHYDRAMINE HYDROCHLORIDE
     Route: 048
     Dates: start: 20211029, end: 20211029
  88. LANSOPRAZOLE [Concomitant]
     Active Substance: LANSOPRAZOLE
     Route: 042
     Dates: start: 20210806, end: 20210806
  89. LANSOPRAZOLE [Concomitant]
     Active Substance: LANSOPRAZOLE
     Route: 042
     Dates: start: 20210312, end: 20210312
  90. LANSOPRAZOLE [Concomitant]
     Active Substance: LANSOPRAZOLE
     Route: 042
     Dates: start: 20210312, end: 20210312
  91. ESOMEPRAZOLE SODIUM [Concomitant]
     Active Substance: ESOMEPRAZOLE SODIUM
     Route: 042
     Dates: start: 20220720, end: 20220720
  92. ESOMEPRAZOLE SODIUM [Concomitant]
     Active Substance: ESOMEPRAZOLE SODIUM
     Route: 042
     Dates: start: 20220810, end: 20220810
  93. ESOMEPRAZOLE SODIUM [Concomitant]
     Active Substance: ESOMEPRAZOLE SODIUM
     Route: 042
     Dates: start: 20211009, end: 20211009
  94. ESOMEPRAZOLE SODIUM [Concomitant]
     Active Substance: ESOMEPRAZOLE SODIUM
     Route: 042
     Dates: start: 20220831, end: 20220831
  95. ESOMEPRAZOLE SODIUM [Concomitant]
     Active Substance: ESOMEPRAZOLE SODIUM
     Route: 042
     Dates: start: 20220921, end: 20220921
  96. ESOMEPRAZOLE SODIUM [Concomitant]
     Active Substance: ESOMEPRAZOLE SODIUM
     Route: 042
     Dates: start: 20221012, end: 20221012
  97. ESOMEPRAZOLE SODIUM [Concomitant]
     Active Substance: ESOMEPRAZOLE SODIUM
     Route: 042
     Dates: start: 20221102, end: 20221122
  98. ESOMEPRAZOLE SODIUM [Concomitant]
     Active Substance: ESOMEPRAZOLE SODIUM
     Route: 042
     Dates: start: 20221123, end: 20221123
  99. PHOSPHOLIPID [Concomitant]
     Active Substance: PHOSPHOLIPID
     Route: 042
     Dates: start: 20221102, end: 20221102
  100. PHOSPHOLIPID [Concomitant]
     Active Substance: PHOSPHOLIPID
     Route: 042
     Dates: start: 20221123, end: 20221123
  101. ILAPRAZOLE [Concomitant]
     Active Substance: ILAPRAZOLE
     Route: 042
     Dates: start: 20230224, end: 20230224
  102. ILAPRAZOLE [Concomitant]
     Active Substance: ILAPRAZOLE
     Route: 042
     Dates: start: 20230203, end: 20230203
  103. GLUTATHIONE [Concomitant]
     Active Substance: GLUTATHIONE
     Route: 042
     Dates: start: 20230224, end: 20230224
  104. GLUTATHIONE [Concomitant]
     Active Substance: GLUTATHIONE
     Route: 042
     Dates: start: 20230112, end: 20230112
  105. GLUTATHIONE [Concomitant]
     Active Substance: GLUTATHIONE
     Route: 042
     Dates: start: 20230203, end: 20230203
  106. ROXATIDINE ACETATE HYDROCHLORIDE [Concomitant]
     Active Substance: ROXATIDINE ACETATE HYDROCHLORIDE
     Route: 042
     Dates: start: 20230112, end: 20230112

REACTIONS (1)
  - Cervix carcinoma [Not Recovered/Not Resolved]

NARRATIVE: CASE EVENT DATE: 20230316
